FAERS Safety Report 16042407 (Version 1)
Quarter: 2019Q1

REPORT INFORMATION
  Report Type: Spontaneous
  Country: US (occurrence: US)
  Receive Date: 20190306
  Receipt Date: 20190306
  Transmission Date: 20190418
  Serious: No
  Sender: FDA-Public Use
  Company Number: US-AKORN PHARMACEUTICALS-2018AKN00919

PATIENT
  Age: 22 Year
  Sex: Male
  Weight: 55.33 kg

DRUGS (1)
  1. MYORISAN [Suspect]
     Active Substance: ISOTRETINOIN
     Indication: ACNE
     Dosage: 30 MG, 2X/DAY
     Route: 048
     Dates: start: 20180521, end: 20180613

REACTIONS (3)
  - Skin irritation [Unknown]
  - Dry skin [Unknown]
  - Alopecia [Recovered/Resolved]

NARRATIVE: CASE EVENT DATE: 20180530
